FAERS Safety Report 19691992 (Version 10)
Quarter: 2024Q3

REPORT INFORMATION
  Report Type: Report from Study
  Country: CA (occurrence: CA)
  Receive Date: 20210812
  Receipt Date: 20240702
  Transmission Date: 20241017
  Serious: Yes (Hospitalization, Other)
  Sender: TAKEDA
  Company Number: CA-TAKEDA-2021TUS046478

PATIENT
  Age: 77 Year
  Sex: Female

DRUGS (15)
  1. HUMAN IMMUNOGLOBULIN G [Suspect]
     Active Substance: HUMAN IMMUNOGLOBULIN G
     Indication: Primary immunodeficiency syndrome
     Dosage: 5 GRAM, 1/WEEK
     Route: 065
     Dates: start: 20210614
  2. HUMAN IMMUNOGLOBULIN G [Suspect]
     Active Substance: HUMAN IMMUNOGLOBULIN G
     Indication: Immunodeficiency common variable
     Dosage: 6 GRAM, 1/WEEK
     Route: 050
  3. HUMAN IMMUNOGLOBULIN G [Suspect]
     Active Substance: HUMAN IMMUNOGLOBULIN G
     Dosage: 1 GRAM
     Route: 065
     Dates: start: 20210707
  4. HUMAN IMMUNOGLOBULIN G [Suspect]
     Active Substance: HUMAN IMMUNOGLOBULIN G
     Dosage: 4 GRAM
     Route: 065
     Dates: start: 20210713
  5. HUMAN IMMUNOGLOBULIN G [Suspect]
     Active Substance: HUMAN IMMUNOGLOBULIN G
     Dosage: 5 GRAM, 1/WEEK
     Route: 058
  6. HUMAN IMMUNOGLOBULIN G [Suspect]
     Active Substance: HUMAN IMMUNOGLOBULIN G
     Dosage: 7 GRAM, 1/WEEK
     Route: 050
  7. HUMAN IMMUNOGLOBULIN G [Suspect]
     Active Substance: HUMAN IMMUNOGLOBULIN G
     Dosage: 7 GRAM, 1/WEEK
     Route: 058
  8. IRBESARTAN [Concomitant]
     Active Substance: IRBESARTAN
     Dosage: 75 MILLIGRAM, QD
     Route: 065
  9. METOPROLOL [Concomitant]
     Active Substance: METOPROLOL
     Dosage: 25 MILLIGRAM, BID
     Route: 065
  10. ASPIRIN [Concomitant]
     Active Substance: ASPIRIN
     Dosage: 81 MILLIGRAM, QD
     Route: 065
  11. VITAMIN B12 [Concomitant]
     Active Substance: CYANOCOBALAMIN
     Dosage: 1000 MICROGRAM, QD
     Route: 065
  12. TEMAZEPAM [Concomitant]
     Active Substance: TEMAZEPAM
     Dosage: 15 MILLIGRAM, QD
     Route: 065
  13. ATROVENT [Concomitant]
     Active Substance: IPRATROPIUM BROMIDE
     Dosage: 1 DOSAGE FORM, QID
     Route: 065
  14. BISOPROLOL FUMARATE [Concomitant]
     Active Substance: BISOPROLOL FUMARATE
     Dosage: 5 MILLIGRAM, QD
     Route: 065
  15. LEVOTHYROXINE [Concomitant]
     Active Substance: LEVOTHYROXINE\LEVOTHYROXINE SODIUM
     Dosage: 50 MICROGRAM, QD
     Route: 065

REACTIONS (26)
  - Cardiac disorder [Unknown]
  - Lower respiratory tract infection [Unknown]
  - Monoclonal B-cell lymphocytosis [Unknown]
  - Angioedema [Not Recovered/Not Resolved]
  - Feeling hot [Not Recovered/Not Resolved]
  - Infusion related reaction [Unknown]
  - Blood immunoglobulin G decreased [Not Recovered/Not Resolved]
  - Increased tendency to bruise [Recovering/Resolving]
  - Nasal congestion [Recovering/Resolving]
  - Macrocytosis [Unknown]
  - Weight fluctuation [Unknown]
  - Haematoma [Unknown]
  - Anaemia macrocytic [Unknown]
  - Full blood count abnormal [Unknown]
  - Rhinitis [Recovering/Resolving]
  - Blood lactate dehydrogenase increased [Unknown]
  - Haemoglobin decreased [Unknown]
  - Eosinophil count increased [Unknown]
  - Hepatic steatosis [Recovering/Resolving]
  - Device connection issue [Unknown]
  - Rhinorrhoea [Recovering/Resolving]
  - Cough [Recovering/Resolving]
  - Infusion site pruritus [Unknown]
  - Infusion site erythema [Unknown]
  - Fatigue [Unknown]
  - Urticaria [Recovered/Resolved]

NARRATIVE: CASE EVENT DATE: 20210720
